FAERS Safety Report 12686566 (Version 4)
Quarter: 2022Q1

REPORT INFORMATION
  Report Type: Report from Study
  Country: US (occurrence: US)
  Receive Date: 20160825
  Receipt Date: 20220121
  Transmission Date: 20220423
  Serious: Yes (Other)
  Sender: FDA-Public Use
  Company Number: US-JAZZ-2016-US-006857

PATIENT
  Sex: Female
  Weight: 71.202 kg

DRUGS (14)
  1. XYREM [Suspect]
     Active Substance: SODIUM OXYBATE
     Indication: Narcolepsy
     Dosage: 2.25 GRAM, BID
     Route: 048
     Dates: start: 20160307, end: 2016
  2. XYREM [Suspect]
     Active Substance: SODIUM OXYBATE
     Indication: Cataplexy
     Dosage: DOSE ADJUSTMENTS
     Route: 048
     Dates: start: 2016, end: 2016
  3. XYREM [Suspect]
     Active Substance: SODIUM OXYBATE
     Indication: Somnolence
     Dosage: 4.5 GRAM, BID
     Route: 048
     Dates: start: 20160322, end: 201604
  4. XYREM [Suspect]
     Active Substance: SODIUM OXYBATE
     Dosage: 3 GRAM, BID
     Route: 048
     Dates: start: 20160503
  5. IBUPROFEN [Suspect]
     Active Substance: IBUPROFEN
     Indication: Arthralgia
  6. SULFASALAZINE [Suspect]
     Active Substance: SULFASALAZINE
     Indication: Product used for unknown indication
  7. RITALIN [Concomitant]
     Active Substance: METHYLPHENIDATE HYDROCHLORIDE
     Indication: Product used for unknown indication
     Dosage: UNK
     Dates: start: 201603
  8. RESTASIS [Concomitant]
     Active Substance: CYCLOSPORINE
     Indication: Product used for unknown indication
     Dosage: UNK
     Dates: start: 201103
  9. ALLEGRA [Concomitant]
     Active Substance: FEXOFENADINE HYDROCHLORIDE
     Indication: Hypersensitivity
  10. CYMBALTA [Concomitant]
     Active Substance: DULOXETINE HYDROCHLORIDE
     Indication: Depression
  11. LO LOESTRIN FE [Concomitant]
     Active Substance: ETHINYL ESTRADIOL\NORETHINDRONE ACETATE
     Indication: Product used for unknown indication
  12. MUCINEX DM [Concomitant]
     Active Substance: DEXTROMETHORPHAN HYDROBROMIDE\GUAIFENESIN
     Indication: Product used for unknown indication
  13. VYVANSE [Concomitant]
     Active Substance: LISDEXAMFETAMINE DIMESYLATE
     Indication: Narcolepsy
  14. NUVIGIL [Concomitant]
     Active Substance: ARMODAFINIL
     Indication: Narcolepsy

REACTIONS (17)
  - Renal failure [Unknown]
  - Central nervous system inflammation [Unknown]
  - Blood pressure diastolic increased [Unknown]
  - Chest discomfort [Unknown]
  - Protein urine present [Unknown]
  - Blood urine present [Unknown]
  - Palpitations [Unknown]
  - Hypoaesthesia oral [Unknown]
  - Hypoaesthesia [Unknown]
  - Neuralgia [Unknown]
  - Dehydration [Unknown]
  - Thinking abnormal [Unknown]
  - Paraesthesia [Unknown]
  - Arthralgia [Unknown]
  - Hypopnoea [Unknown]
  - Dry mouth [Not Recovered/Not Resolved]
  - Decreased appetite [Unknown]

NARRATIVE: CASE EVENT DATE: 20160101
